FAERS Safety Report 7654216-1 (Version None)
Quarter: 2011Q3

REPORT INFORMATION
  Report Type: 
  Country: None (occurrence: None)
  Receive Date: 20110802
  Receipt Date: 20110802
  Transmission Date: 20111222
  Serious: Yes (Other)
  Sender: FDA-Public Use
  Company Number: None

PATIENT

DRUGS (4)
  1. PREDNISOLONE [Concomitant]
  2. ADVANTAGE FOR DOGS [Suspect]
     Indication: FLEA INFESTATION
     Dosage: 2.5 ML
     Dates: start: 20110615
  3. ACETATE [Concomitant]
  4. OXYCODONE HCL [Concomitant]

REACTIONS (2)
  - PRODUCT PACKAGING ISSUE [None]
  - ACCIDENTAL EXPOSURE [None]
